FAERS Safety Report 5500987-X (Version None)
Quarter: 2007Q4

REPORT INFORMATION
  Report Type: 
  Country: None (occurrence: None)
  Receive Date: 20071029
  Receipt Date: 20071023
  Transmission Date: 20080405
  Serious: Yes (Life-Threatening, Other)
  Sender: FDA-Public Use
  Company Number: PHHO2007US17756

PATIENT
  Age: 56 Year
  Sex: Female
  Weight: 79.5 kg

DRUGS (7)
  1. RECLAST [Suspect]
     Dosage: 5 MG, ONCE/SINGLE
     Route: 042
     Dates: start: 20071022, end: 20071022
  2. CALCIUM [Concomitant]
  3. VITAMIN D [Concomitant]
  4. METFORMIN HCL [Concomitant]
     Indication: DIABETES MELLITUS
     Dates: start: 20041117
  5. GLIPIZIDE [Concomitant]
     Indication: DIABETES MELLITUS
     Dates: start: 20040826
  6. ENALAPRIL MALEATE [Concomitant]
     Indication: HYPERTENSION
     Dates: start: 20040826
  7. FLUVASTATIN [Suspect]
     Indication: PROPHYLAXIS
     Dosage: DOUBLE BLIND
     Route: 048
     Dates: start: 20071022

REACTIONS (5)
  - DIZZINESS [None]
  - EYE SWELLING [None]
  - PAIN [None]
  - SLEEP DISORDER [None]
  - SYNCOPE [None]
